FAERS Safety Report 10791178 (Version 1)
Quarter: 2015Q1

REPORT INFORMATION
  Report Type: Report from Study
  Country: IL (occurrence: IL)
  Receive Date: 20150212
  Receipt Date: 20150212
  Transmission Date: 20150721
  Serious: Yes (Death)
  Sender: FDA-Public Use
  Company Number: IL-MYLANLABS-2015M1004113

PATIENT

DRUGS (1)
  1. CAPECITABINE. [Suspect]
     Active Substance: CAPECITABINE
     Indication: BREAST CANCER METASTATIC
     Dosage: 2000 MG/M2/DAY FOR 14 CONSECUTIVE DAYS; CYCLES REPEATED EVERY 3 WEEKS.
     Route: 065

REACTIONS (3)
  - Pulmonary embolism [Fatal]
  - Hypertriglyceridaemia [Unknown]
  - Blood cholesterol increased [Unknown]
